FAERS Safety Report 6557096-0 (Version None)
Quarter: 2010Q1

REPORT INFORMATION
  Report Type: 
  Country: None (occurrence: None)
  Receive Date: 20100128
  Receipt Date: 20100118
  Transmission Date: 20100710
  Serious: Yes (Other)
  Sender: FDA-Public Use
  Company Number: GB-AMGEN-US387542

PATIENT
  Age: 52 Year
  Sex: Male

DRUGS (5)
  1. ENBREL [Suspect]
     Indication: PSORIATIC ARTHROPATHY
     Dosage: UNKNOWN
     Route: 030
     Dates: start: 20061006, end: 20091101
  2. WARFARIN [Concomitant]
     Dosage: UNKNOWN
     Route: 065
  3. FOLIC ACID [Concomitant]
     Dosage: UNKNOWN
     Route: 065
  4. BISOPROLOL FUMARATE [Concomitant]
     Dosage: UNKNOWN
     Route: 065
  5. DIGOXIN [Concomitant]
     Dosage: UNKNOWN
     Route: 065

REACTIONS (2)
  - INCORRECT ROUTE OF DRUG ADMINISTRATION [None]
  - PARAPROTEINAEMIA [None]
